FAERS Safety Report 8587088-1 (Version None)
Quarter: 2012Q3

REPORT INFORMATION
  Report Type: 
  Country: None (occurrence: None)
  Receive Date: 20120810
  Receipt Date: 20120802
  Transmission Date: 20120928
  Serious: Yes (Hospitalization, Disabling, Other)
  Sender: FDA-Public Use
  Company Number: US-009507513-1010USA02478

PATIENT

DRUGS (2)
  1. FOSAMAX [Suspect]
     Indication: OSTEOPOROSIS
     Dosage: 70 MG, QW
     Route: 048
     Dates: start: 20040101, end: 20100515
  2. PROZAC [Concomitant]

REACTIONS (6)
  - FEMUR FRACTURE [None]
  - TOOTH EXTRACTION [None]
  - DENTAL IMPLANTATION [None]
  - GASTROOESOPHAGEAL REFLUX DISEASE [None]
  - FRACTURE DELAYED UNION [None]
  - ANXIETY [None]
